FAERS Safety Report 6210399-1 (Version None)
Quarter: 2009Q2

REPORT INFORMATION
  Report Type: 
  Country: None (occurrence: None)
  Receive Date: 20090529
  Receipt Date: 20090529
  Transmission Date: 20091009
  Serious: Yes (Other)
  Sender: FDA-Public Use
  Company Number: None

PATIENT
  Age: 60 Year
  Sex: Female
  Weight: 61.6892 kg

DRUGS (2)
  1. METRONIDAZOLE [Suspect]
     Indication: VAGINAL INFECTION
     Dosage: 1 TAB 2 TIMES DAILY PO
     Route: 048
     Dates: start: 20090523, end: 20090530
  2. CIPROFLOXACIN [Suspect]
     Indication: VAGINAL INFECTION
     Dosage: 1 TAB 2 TIMES DAILY PO
     Route: 048
     Dates: start: 20090523, end: 20090525

REACTIONS (4)
  - ARTHRALGIA [None]
  - DIZZINESS [None]
  - MALAISE [None]
  - MYALGIA [None]
